FAERS Safety Report 23974941 (Version 5)
Quarter: 2025Q4

REPORT INFORMATION
  Report Type: Report from Study
  Country: JP (occurrence: JP)
  Receive Date: 20240614
  Receipt Date: 20251121
  Transmission Date: 20260117
  Serious: Yes (Hospitalization, Other)
  Sender: UCB
  Company Number: JP-UCBJ-CD202405012UCBPHAPROD

PATIENT
  Age: 71 Year
  Weight: 47.9 kg

DRUGS (11)
  1. ROZANOLIXIZUMAB [Suspect]
     Active Substance: ROZANOLIXIZUMAB
     Indication: Myasthenia gravis
     Dosage: 280 MILLIGRAM, WEEKLY (QW)
  2. ROZANOLIXIZUMAB [Suspect]
     Active Substance: ROZANOLIXIZUMAB
     Dosage: 280 MILLIGRAM, WEEKLY (QW)
  3. ROZANOLIXIZUMAB [Suspect]
     Active Substance: ROZANOLIXIZUMAB
     Dosage: 280 MILLIGRAM, WEEKLY (QW)
  4. ZILBRYSQ [Concomitant]
     Active Substance: ZILUCOPLAN
     Indication: Myasthenia gravis
     Dosage: 16.6 MILLIGRAM, ONCE DAILY (QD)
  5. PREDONINE [Concomitant]
     Active Substance: PREDNISOLONE
     Indication: Myasthenia gravis
     Dosage: 7.5 MILLIGRAM, ONCE DAILY (QD)
  6. PREDONINE [Concomitant]
     Active Substance: PREDNISOLONE
     Dosage: 10 MILLIGRAM, ONCE DAILY (QD)
  7. MESTINON [Concomitant]
     Active Substance: PYRIDOSTIGMINE BROMIDE
     Indication: Myasthenia gravis
     Dosage: 180 MILLIGRAM, ONCE DAILY (QD)
  8. CYCLOSPORINE [Concomitant]
     Active Substance: CYCLOSPORINE
     Indication: Myasthenia gravis
     Dosage: 250 MILLIGRAM, ONCE DAILY (QD)
  9. BONVIVA [Concomitant]
     Active Substance: IBANDRONATE SODIUM
     Indication: Prophylaxis
     Dosage: 100 MILLIGRAM, MONTHLY (QM)
  10. CEFTRIAXONE SODIUM [Concomitant]
     Active Substance: CEFTRIAXONE SODIUM
     Indication: Prophylaxis
     Dosage: 2 GRAM, ONCE DAILY (QD)
  11. FAMOTIDINE [Concomitant]
     Active Substance: FAMOTIDINE
     Indication: Prophylaxis
     Dosage: 40 MILLIGRAM, ONCE DAILY (QD)

REACTIONS (4)
  - Myasthenia gravis [Recovering/Resolving]
  - Pneumonia aspiration [Recovered/Resolved]
  - Myasthenia gravis crisis [Recovering/Resolving]
  - Therapeutic response decreased [Unknown]
